FAERS Safety Report 8215149-5 (Version None)
Quarter: 2012Q1

REPORT INFORMATION
  Report Type: 
  Country: None (occurrence: None)
  Receive Date: 20120316
  Receipt Date: 20120313
  Transmission Date: 20120608
  Serious: Yes (Hospitalization)
  Sender: FDA-Public Use
  Company Number: US-GILEAD-2012-0051514

PATIENT
  Sex: Female

DRUGS (4)
  1. LETAIRIS [Suspect]
     Indication: PULMONARY HYPERTENSION
     Dosage: 5 MG, UNK
     Route: 048
     Dates: start: 20120208
  2. LETAIRIS [Suspect]
     Indication: HEART DISEASE CONGENITAL
  3. LETAIRIS [Suspect]
     Indication: ATRIAL SEPTAL DEFECT
  4. LETAIRIS [Suspect]
     Indication: VENTRICULAR SEPTAL DEFECT

REACTIONS (2)
  - LUNG NEOPLASM [None]
  - PNEUMONIA [None]
